FAERS Safety Report 5877702-3 (Version None)
Quarter: 2008Q3

REPORT INFORMATION
  Report Type: 
  Country: None (occurrence: None)
  Receive Date: 20080911
  Receipt Date: 20080903
  Transmission Date: 20090109
  Serious: No
  Sender: FDA-Public Use
  Company Number: US-JNJFOC-20080203355

PATIENT
  Sex: Female
  Weight: 102.06 kg

DRUGS (4)
  1. DURAGESIC-100 [Suspect]
     Indication: BACK PAIN
     Route: 062
  2. NEURONTIN [Concomitant]
     Indication: NEURALGIA
  3. FELDENE [Concomitant]
     Indication: OSTEOARTHRITIS
  4. FLEXERIL [Concomitant]
     Indication: MUSCLE SPASMS

REACTIONS (4)
  - NAUSEA [None]
  - SKIN IRRITATION [None]
  - SOMNOLENCE [None]
  - VOMITING [None]
